FAERS Safety Report 4719814-3 (Version None)
Quarter: 2005Q3

REPORT INFORMATION
  Report Type: 
  Country: None (occurrence: None)
  Receive Date: 20050721
  Receipt Date: 20041104
  Transmission Date: 20060218
  Serious: No
  Sender: FDA-Public Use
  Company Number: US-GLAXOSMITHKLINE-A0533777A

PATIENT
  Age: 61 Year
  Sex: Female

DRUGS (4)
  1. AVANDIA [Suspect]
     Indication: DRUG USE FOR UNKNOWN INDICATION
     Route: 048
     Dates: end: 20041031
  2. WELLBUTRIN [Concomitant]
     Route: 048
  3. AMARYL [Concomitant]
  4. METFORMIN [Concomitant]

REACTIONS (1)
  - OEDEMA PERIPHERAL [None]
